FAERS Safety Report 19025760 (Version 1)
Quarter: 2021Q1

REPORT INFORMATION
  Report Type: Spontaneous
  Country: US (occurrence: US)
  Receive Date: 20210318
  Receipt Date: 20210318
  Transmission Date: 20210420
  Serious: Yes (Other)
  Sender: FDA-Public Use
  Company Number: None

PATIENT
  Age: 35 Year
  Sex: Male
  Weight: 92.25 kg

DRUGS (13)
  1. HYDROXYCHLOROQUINE [Suspect]
     Active Substance: HYDROXYCHLOROQUINE
     Indication: DERMATOMYOSITIS
     Dates: start: 20200811, end: 20210201
  2. PREGABALIN. [Concomitant]
     Active Substance: PREGABALIN
  3. SOLIMO PROBIOTIC [Concomitant]
  4. ZYRTEC [Concomitant]
     Active Substance: CETIRIZINE HYDROCHLORIDE
  5. APREPITANT. [Suspect]
     Active Substance: APREPITANT
  6. OMEGA?3 ACIDS [Concomitant]
     Active Substance: OMEGA-3 FATTY ACIDS
  7. MEN^S MULTIVITAMIN [Concomitant]
  8. VITAMIN D3 [Concomitant]
     Active Substance: CHOLECALCIFEROL
  9. ALEVE [Concomitant]
     Active Substance: NAPROXEN SODIUM
  10. HYDROXYZINE [Concomitant]
     Active Substance: HYDROXYZINE HYDROCHLORIDE
  11. PEPCID AC [Concomitant]
     Active Substance: FAMOTIDINE
  12. FINASTERIDE. [Concomitant]
     Active Substance: FINASTERIDE
  13. PSYLLIUM FIBER [Concomitant]

REACTIONS (8)
  - Paraesthesia [None]
  - Delirium [None]
  - Drug eruption [None]
  - Pruritus [None]
  - Hallucination [None]
  - Affect lability [None]
  - Psychotic disorder [None]
  - Restlessness [None]

NARRATIVE: CASE EVENT DATE: 20210128
